FAERS Safety Report 19799188 (Version 2)
Quarter: 2021Q3

REPORT INFORMATION
  Report Type: Spontaneous
  Country: US (occurrence: US)
  Receive Date: 20210907
  Receipt Date: 20210914
  Transmission Date: 20211014
  Serious: No
  Sender: FDA-Public Use
  Company Number: US-PFIZER INC-202101110571

PATIENT
  Age: 86 Year
  Sex: Female

DRUGS (4)
  1. RUXIENCE [Suspect]
     Active Substance: RITUXIMAB-PVVR
     Indication: AORTIC VALVE INCOMPETENCE
  2. RUXIENCE [Suspect]
     Active Substance: RITUXIMAB-PVVR
     Indication: MITRAL VALVE INCOMPETENCE
  3. RUXIENCE [Suspect]
     Active Substance: RITUXIMAB-PVVR
     Indication: FOLLICULAR LYMPHOMA
     Dosage: 600 MG WEEKLY (100 MG/10 ML (100) 500 MG/50 ML (500)X 4 CYCLES)
  4. RUXIENCE [Suspect]
     Active Substance: RITUXIMAB-PVVR
     Indication: CHRONIC OBSTRUCTIVE PULMONARY DISEASE

REACTIONS (1)
  - Off label use [Unknown]
